FAERS Safety Report 25818001 (Version 1)
Quarter: 2025Q3

REPORT INFORMATION
  Report Type: Spontaneous
  Country: US (occurrence: US)
  Receive Date: 20250918
  Receipt Date: 20250918
  Transmission Date: 20251020
  Serious: Yes (Other)
  Sender: RANBAXY
  Company Number: US-SUN PHARMACEUTICAL INDUSTRIES LTD-2025R1-527451

PATIENT
  Age: 49 Year
  Sex: Male

DRUGS (2)
  1. CARBOPLATIN [Suspect]
     Active Substance: CARBOPLATIN
     Indication: Testicular germ cell tumour
     Route: 065
     Dates: start: 202109
  2. ETOPOSIDE [Suspect]
     Active Substance: ETOPOSIDE
     Indication: Testicular germ cell tumour
     Route: 048
     Dates: start: 202109

REACTIONS (3)
  - Therapy partial responder [Unknown]
  - Colitis [Recovered/Resolved]
  - Sepsis [Recovered/Resolved]
